FAERS Safety Report 5385668-8 (Version None)
Quarter: 2007Q3

REPORT INFORMATION
  Report Type: 
  Country: None (occurrence: None)
  Receive Date: 20070712
  Receipt Date: 20070702
  Transmission Date: 20080115
  Serious: Yes (Hospitalization, Disabling, Other)
  Sender: FDA-Public Use
  Company Number: US-PFIZER INC-2006149883

PATIENT
  Sex: Female
  Weight: 77.1 kg

DRUGS (3)
  1. CELEBREX [Suspect]
     Indication: PAIN
     Dates: start: 19990101, end: 20020101
  2. VIOXX [Suspect]
     Indication: FIBROMYALGIA
     Dates: start: 19991001, end: 20020301
  3. VIOXX [Suspect]
     Indication: CARPAL TUNNEL SYNDROME

REACTIONS (4)
  - CEREBROVASCULAR ACCIDENT [None]
  - DEEP VEIN THROMBOSIS [None]
  - PARALYSIS [None]
  - THROMBOSIS [None]
